FAERS Safety Report 4595363-0 (Version None)
Quarter: 2005Q1

REPORT INFORMATION
  Report Type: 
  Country: None (occurrence: None)
  Receive Date: 20050225
  Receipt Date: 20050225
  Transmission Date: 20050727
  Serious: No
  Sender: FDA-Public Use
  Company Number: None

PATIENT
  Sex: Female
  Weight: 79.1 kg

DRUGS (6)
  1. TYLENOL [Suspect]
     Indication: PAIN
     Dosage: 625 MG PRN ORAL
     Route: 048
     Dates: start: 20041230, end: 20041230
  2. TYLENOL [Suspect]
     Indication: PYREXIA
     Dosage: 625 MG PRN ORAL
     Route: 048
     Dates: start: 20041230, end: 20041230
  3. ALBUTEROL [Concomitant]
  4. FLUTICASONE INHALER [Concomitant]
  5. MONTELUKAST [Concomitant]
  6. OMEPRAZOLE [Concomitant]

REACTIONS (3)
  - DRUG HYPERSENSITIVITY [None]
  - DYSPNOEA [None]
  - THROAT TIGHTNESS [None]
